FAERS Safety Report 8758506 (Version 1)
Quarter: 2012Q4

REPORT INFORMATION
  Report Type: 
  Country: CN (occurrence: CN)
  Receive Date: 20120829
  Receipt Date: 20120829
  Transmission Date: 20130627
  Serious: Yes (Other)
  Sender: FDA-Public Use
  Company Number: CN-ABBOTT-12P-035-0972646-00

PATIENT
  Age: 4 Year
  Sex: Male

DRUGS (2)
  1. DEPAKINE SYRUP [Suspect]
     Indication: EPILEPSY
     Dosage: Oral solution
     Route: 048
     Dates: start: 20120801
  2. DEPAKINE SYRUP [Suspect]
     Dosage: Oral solution
     Route: 048
     Dates: start: 201208

REACTIONS (4)
  - Fall [Unknown]
  - Muscular weakness [Unknown]
  - Epilepsy [Recovered/Resolved]
  - Epistaxis [Unknown]
